FAERS Safety Report 5531799-9 (Version None)
Quarter: 2007Q4

REPORT INFORMATION
  Report Type: 
  Country: None (occurrence: None)
  Receive Date: 20071128
  Receipt Date: 20071128
  Transmission Date: 20080405
  Serious: Yes (Death)
  Sender: FDA-Public Use
  Company Number: None

PATIENT

DRUGS (1)
  1. CHANTIX [Suspect]

REACTIONS (4)
  - ABNORMAL BEHAVIOUR [None]
  - ABNORMAL DREAMS [None]
  - COMPLETED SUICIDE [None]
  - FEELING ABNORMAL [None]
